FAERS Safety Report 4540875-9 (Version None)
Quarter: 2004Q4

REPORT INFORMATION
  Report Type: 
  Country: None (occurrence: None)
  Receive Date: 20041229
  Receipt Date: 20041215
  Transmission Date: 20050328
  Serious: Yes (Hospitalization)
  Sender: FDA-Public Use
  Company Number: SEWYE288217DEC04

PATIENT
  Sex: Female
  Weight: 65 kg

DRUGS (5)
  1. ENBREL [Suspect]
     Indication: PSORIASIS
     Dosage: DOSE REGIMEN WAS NOT SPECIFIED
     Route: 058
     Dates: start: 20040506, end: 20040929
  2. ENBREL [Suspect]
     Indication: GOUT
  3. OXYCONTIN [Concomitant]
     Dosage: 20 MG EVERY
  4. FUROSEMIDE [Concomitant]
     Dosage: 40 MG EVERY
     Route: 048
  5. VIOXX [Concomitant]
     Dosage: 25 MG EVERY
     Route: 048
     Dates: start: 20030101, end: 20040929

REACTIONS (1)
  - POLYNEUROPATHY [None]
